FAERS Safety Report 5303003-8 (Version None)
Quarter: 2007Q2

REPORT INFORMATION
  Report Type: 
  Country: None (occurrence: None)
  Receive Date: 20070420
  Receipt Date: 20070412
  Transmission Date: 20071010
  Serious: Yes (Hospitalization, Other)
  Sender: FDA-Public Use
  Company Number: US-JNJFOC-20070403138

PATIENT
  Age: 21 Year
  Sex: Female

DRUGS (1)
  1. ORTHO EVRA [Suspect]
     Indication: DRUG USE FOR UNKNOWN INDICATION

REACTIONS (3)
  - APPENDICECTOMY [None]
  - OVARIAN CYST RUPTURED [None]
  - UTERINE DISORDER [None]
